FAERS Safety Report 13120023 (Version 2)
Quarter: 2017Q1

REPORT INFORMATION
  Report Type: Report from Study
  Country: BE (occurrence: BE)
  Receive Date: 20170117
  Receipt Date: 20170308
  Transmission Date: 20170428
  Serious: Yes (Other)
  Sender: FDA-Public Use
  Company Number: BE-AMGEN-BELNI2017005092

PATIENT

DRUGS (1)
  1. BLINATUMOMAB [Suspect]
     Active Substance: BLINATUMOMAB
     Indication: B PRECURSOR TYPE ACUTE LEUKAEMIA
     Route: 065

REACTIONS (5)
  - Hyperglycaemia [Unknown]
  - Pyrexia [Unknown]
  - Inflammation [Unknown]
  - Drug ineffective [Unknown]
  - Acute lymphocytic leukaemia refractory [Unknown]
